FAERS Safety Report 6981765-1 (Version None)
Quarter: 2010Q3

REPORT INFORMATION
  Report Type: 
  Country: None (occurrence: None)
  Receive Date: 20100914
  Receipt Date: 20091013
  Transmission Date: 20110219
  Serious: Yes (Other)
  Sender: FDA-Public Use
  Company Number: US-PFIZER INC-2009267040

PATIENT
  Age: 35 Year
  Sex: Female

DRUGS (2)
  1. LYRICA [Suspect]
     Dosage: UNK
     Route: 048
  2. PROZAC [Concomitant]
     Dosage: UNK

REACTIONS (3)
  - FACIAL BONES FRACTURE [None]
  - FALL [None]
  - HYPOTENSION [None]
